FAERS Safety Report 5089677-8 (Version None)
Quarter: 2006Q3

REPORT INFORMATION
  Report Type: 
  Country: None (occurrence: None)
  Receive Date: 20060828
  Receipt Date: 20060818
  Transmission Date: 20061208
  Serious: Yes (Hospitalization)
  Sender: FDA-Public Use
  Company Number: JP-JNJFOC-20060702706

PATIENT
  Sex: Male
  Weight: 54 kg

DRUGS (10)
  1. REMICADE [Suspect]
     Route: 042
  2. REMICADE [Suspect]
     Indication: CROHN'S DISEASE
     Route: 042
  3. PROMAC [Suspect]
     Indication: GASTRIC ULCER
     Route: 048
  4. PENTASA [Suspect]
     Indication: CROHN'S DISEASE
     Route: 048
  5. ISCOTIN [Suspect]
     Indication: ANTIBIOTIC PROPHYLAXIS
     Route: 048
  6. PYDOXAL [Suspect]
     Indication: PROPHYLAXIS
     Route: 048
  7. CELESTAMINE TAB [Suspect]
     Indication: PROPHYLAXIS
     Route: 048
  8. TALON [Suspect]
     Indication: PROPHYLAXIS
     Route: 048
  9. GASTER D [Suspect]
     Indication: GASTRIC ULCER
     Route: 048
  10. ELENTAL [Concomitant]
     Route: 048

REACTIONS (2)
  - GASTROINTESTINAL OEDEMA [None]
  - HENOCH-SCHONLEIN PURPURA [None]
